FAERS Safety Report 4505217-3 (Version None)
Quarter: 2005Q1

REPORT INFORMATION
  Report Type: 
  Country: None (occurrence: None)
  Receive Date: 20041015
  Receipt Date: 20040716
  Transmission Date: 20050727
  Serious: Yes (Other)
  Sender: FDA-Public Use
  Company Number: 2004048448

PATIENT
  Age: 59 Year
  Sex: Female
  Weight: 60.3284 kg

DRUGS (3)
  1. NEURONTIN [Suspect]
     Indication: INTERVERTEBRAL DISC DISORDER
     Dosage: 1800 MG (600 MG, 3 IN 1 D), ORAL
     Route: 048
     Dates: start: 20040707
  2. DICLOFENAC SODIUM [Suspect]
     Indication: INTERVERTEBRAL DISC PROTRUSION
     Dosage: ORAL
     Route: 048
     Dates: start: 20040513, end: 20040716
  3. CYANOCOBALAMIN [Suspect]
     Indication: VITAMIN SUPPLEMENTATION
     Dosage: ORAL
     Route: 048
     Dates: start: 20040707, end: 20040716

REACTIONS (5)
  - CONSTIPATION [None]
  - DIARRHOEA [None]
  - FAECES DISCOLOURED [None]
  - HAEMATOCHEZIA [None]
  - SOMNOLENCE [None]
